FAERS Safety Report 8108754-8 (Version None)
Quarter: 2012Q1

REPORT INFORMATION
  Report Type: 
  Country: None (occurrence: None)
  Receive Date: 20120202
  Receipt Date: 20120126
  Transmission Date: 20120608
  Serious: Yes (Other)
  Sender: FDA-Public Use
  Company Number: PHHY2012US007129

PATIENT
  Age: 36 Year
  Sex: Female

DRUGS (1)
  1. LEUPROLIDE ACETATE [Suspect]
     Indication: UTERINE LEIOMYOMA
     Dosage: UNK UKN, UNK

REACTIONS (8)
  - ELEVATED MOOD [None]
  - TACHYPHRENIA [None]
  - CONFUSIONAL STATE [None]
  - INSOMNIA [None]
  - VERBIGERATION [None]
  - DISTURBANCE IN ATTENTION [None]
  - AMNESIA [None]
  - MANIA [None]
